FAERS Safety Report 8958224 (Version 1)
Quarter: 2012Q4

REPORT INFORMATION
  Report Type: 
  Country: US (occurrence: US)
  Receive Date: 20121211
  Receipt Date: 20121211
  Transmission Date: 20130627
  Serious: Yes (Other)
  Sender: FDA-Public Use
  Company Number: PHEH2012US024151

PATIENT
  Sex: Male

DRUGS (2)
  1. TRILEPTAL [Suspect]
     Indication: ANXIETY
  2. GABAPENTIN [Concomitant]

REACTIONS (7)
  - Hallucination [Unknown]
  - Dry mouth [Unknown]
  - Dysphagia [Unknown]
  - Anxiety [Unknown]
  - Dizziness [Unknown]
  - Diplopia [Unknown]
  - Confusional state [Unknown]
